FAERS Safety Report 21290325 (Version 3)
Quarter: 2023Q1

REPORT INFORMATION
  Report Type: Spontaneous
  Country: US (occurrence: US)
  Receive Date: 20220902
  Receipt Date: 20230313
  Transmission Date: 20230417
  Serious: No
  Sender: FDA-Public Use
  Company Number: US-009507513-2208USA010757

PATIENT
  Age: 45 Year
  Sex: Male

DRUGS (2)
  1. TEMODAR [Suspect]
     Active Substance: TEMOZOLOMIDE
     Indication: Glioblastoma
     Dosage: 75 MILLIGRAM/SQ. METER, QD; 6 WEEKS ON/3 WEEKS OFF
     Route: 048
  2. OLAPARIB [Suspect]
     Active Substance: OLAPARIB
     Indication: Glioblastoma
     Dosage: 150 MILLIGRAM, TIW; 6 WEEKS ON/3 WEEKS OFF
     Route: 048

REACTIONS (7)
  - Fatigue [Unknown]
  - Nausea [Unknown]
  - Constipation [Unknown]
  - Dyspepsia [Unknown]
  - Insomnia [Unknown]
  - Mucosal inflammation [Unknown]
  - Product use issue [Unknown]
